FAERS Safety Report 9514669 (Version 1)
Quarter: 2013Q3

REPORT INFORMATION
  Report Type: Spontaneous
  Country: DE (occurrence: DE)
  Receive Date: 20130911
  Receipt Date: 20130911
  Transmission Date: 20140515
  Serious: Yes (Other)
  Sender: FDA-Public Use
  Company Number: DE-BAYER-2013-108226

PATIENT
  Sex: Male
  Weight: 77.1 kg

DRUGS (1)
  1. CIPROBAY [Suspect]
     Dosage: 250 MG, UNK

REACTIONS (10)
  - Gastroenteritis [None]
  - Cholestasis [None]
  - Gamma-glutamyltransferase increased [None]
  - Liver tenderness [None]
  - Faeces pale [None]
  - Diarrhoea [None]
  - Malaise [None]
  - Aspartate aminotransferase increased [None]
  - Blood alkaline phosphatase increased [None]
  - Alanine aminotransferase increased [None]
